FAERS Safety Report 11903801 (Version 1)
Quarter: 2016Q1

REPORT INFORMATION
  Report Type: Report from Study
  Country: US (occurrence: US)
  Receive Date: 20160108
  Receipt Date: 20160108
  Transmission Date: 20160526
  Serious: No
  Sender: FDA-Public Use
  Company Number: US-ABBVIE-15P-163-1480157-00

PATIENT
  Sex: Male
  Weight: 81.72 kg

DRUGS (2)
  1. VIEKIRA PAK [Suspect]
     Active Substance: DASABUVIR\OMBITASVIR\PARITAPREVIR\RITONAVIR
     Indication: HEPATITIS C
     Dosage: EVERY MORNING AND EVENING WITH FOOD.
     Route: 048
     Dates: start: 201507
  2. RIBASPHERE [Concomitant]
     Active Substance: RIBAVIRIN
     Indication: HEPATITIS C
     Route: 048

REACTIONS (3)
  - Decreased appetite [Unknown]
  - Diarrhoea [Unknown]
  - Glycosylated haemoglobin increased [Unknown]
